FAERS Safety Report 8420153-8 (Version None)
Quarter: 2012Q2

REPORT INFORMATION
  Report Type: 
  Country: None (occurrence: None)
  Receive Date: 20120607
  Receipt Date: 20120530
  Transmission Date: 20120825
  Serious: Yes (Hospitalization)
  Sender: FDA-Public Use
  Company Number: US-INCYTE CORPORATION-2012IN000600

PATIENT
  Sex: Female
  Weight: 59.32 kg

DRUGS (9)
  1. ASPIRIN [Concomitant]
     Dosage: 81 MG, UNK
     Route: 048
  2. FUROSEMIDE [Concomitant]
     Dosage: UNK
  3. JAKAFI [Suspect]
     Indication: MYELOFIBROSIS
     Dosage: 20 MG, BID
     Route: 048
     Dates: start: 20120415, end: 20120419
  4. JAKAFI [Suspect]
     Dosage: UNK
     Route: 048
     Dates: start: 20120517
  5. LISINOPRIL [Concomitant]
     Dosage: UNK
  6. REVATIO [Concomitant]
     Dosage: UNK
  7. SPIRONOLACTONE [Concomitant]
     Dosage: UNK
  8. COLCRYS [Concomitant]
     Dosage: UNK
  9. ANAGRELIDE HCL [Concomitant]
     Dosage: UNK

REACTIONS (7)
  - ABNORMAL FAECES [None]
  - CHROMATURIA [None]
  - FATIGUE [None]
  - URINARY TRACT INFECTION [None]
  - FAECAL INCONTINENCE [None]
  - URINARY INCONTINENCE [None]
  - DECREASED APPETITE [None]
